FAERS Safety Report 11188432 (Version 1)
Quarter: 2015Q2

REPORT INFORMATION
  Report Type: Spontaneous
  Country: US (occurrence: US)
  Receive Date: 20150615
  Receipt Date: 20150615
  Transmission Date: 20150821
  Serious: No
  Sender: FDA-Public Use
  Company Number: US-JNJFOC-20150505216

PATIENT
  Age: 50 Year
  Sex: Male
  Weight: 90.72 kg

DRUGS (6)
  1. REMICADE [Suspect]
     Active Substance: INFLIXIMAB
     Indication: ENDOCRINE DISORDER
     Route: 042
     Dates: start: 20150120, end: 20150120
  2. ACETAMINOPHEN. [Concomitant]
     Active Substance: ACETAMINOPHEN
     Indication: PREMEDICATION
     Route: 065
     Dates: start: 20150120, end: 20150120
  3. TASIGNA [Concomitant]
     Active Substance: NILOTINIB
     Indication: BRAF GENE MUTATION
     Route: 048
     Dates: start: 2014
  4. REMICADE [Suspect]
     Active Substance: INFLIXIMAB
     Indication: PANCREATITIS
     Route: 042
     Dates: start: 20150120, end: 20150120
  5. DIPHENHYDRAMINE [Concomitant]
     Active Substance: DIPHENHYDRAMINE
     Indication: PREMEDICATION
     Route: 065
     Dates: start: 20150120, end: 20150120
  6. METFORMIN [Concomitant]
     Active Substance: METFORMIN HYDROCHLORIDE
     Indication: DIABETES MELLITUS
     Route: 048
     Dates: start: 201501

REACTIONS (4)
  - Lipase decreased [Recovering/Resolving]
  - Therapeutic response unexpected [Unknown]
  - Off label use [Unknown]
  - Amylase decreased [Recovering/Resolving]

NARRATIVE: CASE EVENT DATE: 2015
